FAERS Safety Report 8412911-0 (Version None)
Quarter: 2012Q2

REPORT INFORMATION
  Report Type: 
  Country: None (occurrence: None)
  Receive Date: 20120605
  Receipt Date: 20120529
  Transmission Date: 20120825
  Serious: Yes (Other)
  Sender: FDA-Public Use
  Company Number: US-AMGEN-USASP2012033322

PATIENT
  Age: 50 Year
  Sex: Female

DRUGS (3)
  1. METHOTREXATE [Concomitant]
     Dosage: UNK
  2. ENBREL [Suspect]
     Indication: RHEUMATOID ARTHRITIS
     Dosage: 50 MG, QWK
     Dates: start: 20120513, end: 20120513
  3. ARAVA [Concomitant]
     Dosage: UNK
     Dates: start: 20110101

REACTIONS (6)
  - MALAISE [None]
  - FEELING HOT [None]
  - COUGH [None]
  - NASOPHARYNGITIS [None]
  - OSTEOMYELITIS [None]
  - PARANASAL SINUS HYPERSECRETION [None]
